FAERS Safety Report 25155429 (Version 1)
Quarter: 2025Q2

REPORT INFORMATION
  Report Type: Spontaneous
  Country: ES (occurrence: ES)
  Receive Date: 20250403
  Receipt Date: 20250403
  Transmission Date: 20250717
  Serious: Yes (Other)
  Sender: MERZ
  Company Number: None

PATIENT

DRUGS (2)
  1. BOTULINUM TOXIN TYPE A [Interacting]
     Active Substance: BOTULINUM TOXIN TYPE A
     Indication: Primary stabbing headache
     Dosage: 195 INTERNATIONAL UNIT
     Route: 023
     Dates: start: 20211004, end: 20211004
  2. BUPIVACAINE HYDROCHLORIDE [Interacting]
     Active Substance: BUPIVACAINE HYDROCHLORIDE
     Indication: Primary stabbing headache
     Route: 023
     Dates: start: 20211004

REACTIONS (4)
  - Concomitant disease aggravated [Recovered/Resolved]
  - Primary stabbing headache [Recovered/Resolved]
  - Off label use [Unknown]
  - Drug interaction [Unknown]

NARRATIVE: CASE EVENT DATE: 20211004
